FAERS Safety Report 6387356-8 (Version None)
Quarter: 2009Q3

REPORT INFORMATION
  Report Type: 
  Country: None (occurrence: None)
  Receive Date: 20090930
  Receipt Date: 20090914
  Transmission Date: 20100115
  Serious: Yes (Death, Hospitalization)
  Sender: FDA-Public Use
  Company Number: 2009AL004039

PATIENT
  Age: 63 Year
  Sex: Male
  Weight: 81.6475 kg

DRUGS (49)
  1. DIGOXIN [Suspect]
     Dosage: 0.25MG, DAILY, PO
     Route: 048
     Dates: start: 20070821, end: 20071012
  2. DIGOXIN [Suspect]
     Dosage: 0.125 MG, DAILY, PO
     Route: 048
     Dates: start: 20070627, end: 20070820
  3. HUMULIN R [Concomitant]
  4. LIPITOR [Concomitant]
  5. KLONOPIN [Concomitant]
  6. RISPERDAL [Concomitant]
  7. PAXIL [Concomitant]
  8. ASPIRIN [Concomitant]
  9. LISINOPRIL [Concomitant]
  10. PREDNISONE [Concomitant]
  11. NORVASC [Concomitant]
  12. BACTRIM [Concomitant]
  13. DARVOCET [Concomitant]
  14. BUMEX [Concomitant]
  15. COUMADIN [Concomitant]
  16. PROCRIT [Concomitant]
  17. POTASSIUM CHLORIDE [Concomitant]
  18. CALCIUM [Concomitant]
  19. ALBUTEROL [Concomitant]
  20. ALLOPURINOL [Concomitant]
  21. AMIODARONE [Concomitant]
  22. GENGRAF [Concomitant]
  23. CELLCEPT [Concomitant]
  24. COREG [Concomitant]
  25. REPLIVA [Concomitant]
  26. SPIRIVA [Concomitant]
  27. PROPOXYPHENE HCL CAP [Concomitant]
  28. DOXAZOSIN MESYLATE [Concomitant]
  29. AMLODIPINE BESYLATE [Concomitant]
  30. NEXIUM [Concomitant]
  31. NEORAL [Concomitant]
  32. PROCHLORPERAZINE [Concomitant]
  33. SUFLAMETHOXAZOLE [Concomitant]
  34. METOLAZONE [Concomitant]
  35. ADVAIR DISKUS 100/50 [Concomitant]
  36. AZITHROMYCIN [Concomitant]
  37. GLYCOLAX [Concomitant]
  38. CLOTRIMAZOLE [Concomitant]
  39. AMOXICILLIN [Concomitant]
  40. NITROFURANTOIN [Concomitant]
  41. METRONIDAZOLE [Concomitant]
  42. NITROLINGUAL [Concomitant]
  43. TRIAMCINOLONE [Concomitant]
  44. EPOGEN [Concomitant]
  45. NYSTATIN [Concomitant]
  46. METOPROLOL SUCCINATE [Concomitant]
  47. GABAPENTIN [Concomitant]
  48. NORVASC [Concomitant]
  49. LEVAQUIN [Concomitant]

REACTIONS (15)
  - ASTHENIA [None]
  - AXILLARY MASS [None]
  - CARDIAC FAILURE CONGESTIVE [None]
  - CELLULITIS [None]
  - DYSPNOEA [None]
  - FLANK PAIN [None]
  - GOUTY ARTHRITIS [None]
  - HYPOKALAEMIA [None]
  - NAUSEA [None]
  - OEDEMA PERIPHERAL [None]
  - PANCYTOPENIA [None]
  - PNEUMONIA [None]
  - PRURITUS [None]
  - RENAL IMPAIRMENT [None]
  - VOMITING [None]
